FAERS Safety Report 17509590 (Version 2)
Quarter: 2020Q1

REPORT INFORMATION
  Report Type: Spontaneous
  Country: BE (occurrence: BE)
  Receive Date: 20200306
  Receipt Date: 20200309
  Transmission Date: 20200409
  Serious: Yes (Other)
  Sender: FDA-Public Use
  Company Number: BE-MYLANLABS-2020M1023171

PATIENT
  Age: 40 Year
  Sex: Male
  Weight: 70 kg

DRUGS (1)
  1. VENLAFAXINE [Suspect]
     Active Substance: VENLAFAXINE HYDROCHLORIDE
     Indication: DEPRESSION
     Dosage: HARDE CAPSULE VERLENGDE AFGIFTE
     Route: 048
     Dates: start: 20191017, end: 20191108

REACTIONS (3)
  - Hepatic steatosis [Recovering/Resolving]
  - Hepatitis [Recovering/Resolving]
  - Chromaturia [Recovering/Resolving]
